FAERS Safety Report 5652219-X (Version None)
Quarter: 2008Q1

REPORT INFORMATION
  Report Type: 
  Country: None (occurrence: None)
  Receive Date: 20080304
  Receipt Date: 20080228
  Transmission Date: 20080703
  Serious: Yes (Hospitalization)
  Sender: FDA-Public Use
  Company Number: 2008SP003186

PATIENT
  Age: 55 Year
  Sex: Female

DRUGS (2)
  1. DESLORATADINE [Suspect]
     Indication: NASOPHARYNGITIS
     Dosage: 1 DF QD PO
     Route: 048
  2. NASONEX [Suspect]
     Indication: DRUG USE FOR UNKNOWN INDICATION

REACTIONS (5)
  - EPILEPSY [None]
  - FALL [None]
  - FRACTURE [None]
  - JOINT DISLOCATION [None]
  - LOSS OF CONSCIOUSNESS [None]
